FAERS Safety Report 8693543 (Version 4)
Quarter: 2012Q4

REPORT INFORMATION
  Report Type: 
  Country: DE (occurrence: DE)
  Receive Date: 20120730
  Receipt Date: 20121016
  Transmission Date: 20130627
  Serious: Yes (Death, Other)
  Sender: FDA-Public Use
  Company Number: DE-GENZYME-CLOF-1002225

PATIENT
  Age: 2 Year
  Sex: Male
  Weight: 13.5 kg

DRUGS (22)
  1. CLOFARABINE [Suspect]
     Indication: LEUKAEMIA RECURRENT
     Dosage: 22 mg, qd
     Route: 042
     Dates: start: 20110813, end: 20110817
  2. CYCLOPHOSPHAMIDE [Suspect]
     Indication: LEUKAEMIA RECURRENT
     Dosage: UNK
     Route: 065
     Dates: start: 20110813, end: 20110817
  3. CYCLOPHOSPHAMIDE [Suspect]
     Dosage: UNK
     Route: 065
     Dates: start: 20111005, end: 20111010
  4. ETOPOSIDE [Suspect]
     Indication: LEUKAEMIA RECURRENT
     Dosage: UNK
     Route: 065
     Dates: start: 20110813, end: 20110817
  5. DEXAMETHASONE [Suspect]
     Indication: LEUKAEMIA RECURRENT
     Dosage: UNK
     Route: 065
     Dates: start: 20110914, end: 20110919
  6. DEXAMETHASONE [Suspect]
     Dosage: UNK
     Route: 065
     Dates: start: 20111005, end: 20111010
  7. THIOGUANINE [Suspect]
     Indication: LEUKAEMIA RECURRENT
     Dosage: UNK
     Route: 065
     Dates: start: 20110914, end: 20110919
  8. VINDESINE [Suspect]
     Indication: LEUKAEMIA RECURRENT
     Dosage: UNK
     Route: 065
     Dates: start: 20110914, end: 20110919
  9. METHOTREXATE [Suspect]
     Indication: LEUKAEMIA RECURRENT
     Dosage: UNK
     Route: 037
     Dates: start: 20110914, end: 20110919
  10. METHOTREXATE [Suspect]
     Dosage: UNK
     Route: 037
     Dates: start: 20111005, end: 20111010
  11. METHOTREXATE [Suspect]
     Dosage: UNK, intermediate dose
     Route: 065
     Dates: start: 20110914, end: 20110919
  12. METHOTREXATE [Suspect]
     Dosage: UNK, intermediate dose
     Route: 065
     Dates: start: 20111005, end: 20111010
  13. IFOSFAMIDE [Suspect]
     Indication: LEUKAEMIA RECURRENT
     Dosage: UNK
     Route: 065
     Dates: start: 20110914, end: 20110919
  14. PEG-ASPARAGINASE [Suspect]
     Indication: LEUKAEMIA RECURRENT
     Dosage: UNK
     Route: 065
     Dates: start: 20110914, end: 20110919
  15. PEG-ASPARAGINASE [Suspect]
     Dosage: UNK
     Route: 065
     Dates: start: 20111005, end: 20111010
  16. ARA-C [Suspect]
     Indication: LEUKAEMIA RECURRENT
     Dosage: UNK
     Route: 065
     Dates: start: 20110914, end: 20110919
  17. ARA-C [Suspect]
     Dosage: UNK
     Route: 065
     Dates: start: 20111005, end: 20111010
  18. PREDNISONE [Suspect]
     Indication: LEUKAEMIA RECURRENT
     Dosage: UNK
     Route: 065
     Dates: start: 20110914, end: 20110919
  19. PREDNISONE [Suspect]
     Dosage: UNK
     Route: 065
     Dates: start: 20111005, end: 20111010
  20. VINCRISTINE [Suspect]
     Indication: LEUKAEMIA RECURRENT
     Dosage: UNK
     Route: 065
     Dates: start: 20111005, end: 20111010
  21. METHOTREXATE [Concomitant]
     Indication: PRODUCT USED FOR UNKNOWN INDICATION
     Dosage: UNK
     Route: 048
     Dates: start: 20101001
  22. MERCAPTOPURINE [Concomitant]
     Indication: PRODUCT USED FOR UNKNOWN INDICATION
     Dosage: UNK
     Route: 048
     Dates: start: 20101001

REACTIONS (4)
  - Convulsion [Fatal]
  - Depressed level of consciousness [Fatal]
  - Leukaemia recurrent [Fatal]
  - Aspergillosis [Fatal]
